FAERS Safety Report 22119277 (Version 1)
Quarter: 2023Q1

REPORT INFORMATION
  Report Type: Spontaneous
  Country: US (occurrence: US)
  Receive Date: 20230321
  Receipt Date: 20230321
  Transmission Date: 20230418
  Serious: No
  Sender: FDA-Public Use
  Company Number: US-TARO PHARMACEUTICALS USA INC.-2022TAR00164

PATIENT

DRUGS (1)
  1. ENALAPRIL MALEATE [Suspect]
     Active Substance: ENALAPRIL MALEATE
     Indication: Product used for unknown indication
     Dosage: UNK, (CF BOTTLE)
     Route: 065

REACTIONS (2)
  - Blood pressure increased [Unknown]
  - Drug ineffective [Unknown]
